FAERS Safety Report 15678538 (Version 3)
Quarter: 2019Q1

REPORT INFORMATION
  Report Type: Report from Study
  Country: CA (occurrence: CA)
  Receive Date: 20181201
  Receipt Date: 20190323
  Transmission Date: 20190417
  Serious: Yes (Hospitalization, Other)
  Sender: FDA-Public Use
  Company Number: PHHY2015CA163358

PATIENT
  Age: 74 Year
  Sex: Female

DRUGS (2)
  1. SANDOSTATIN LAR DEPOT [Suspect]
     Active Substance: OCTREOTIDE ACETATE
     Indication: NEUROENDOCRINE TUMOUR
     Dosage: 30 MG, QMO (ONCE A MONTH)
     Route: 030
     Dates: start: 20151111
  2. SANDOSTATIN [Suspect]
     Active Substance: OCTREOTIDE ACETATE
     Indication: NEUROENDOCRINE TUMOUR
     Dosage: UNK UNK, ONCE/SINGLE (TEST DOSE)
     Route: 058
     Dates: start: 20151030, end: 20151030

REACTIONS (26)
  - Thrombosis [Unknown]
  - Blood pressure systolic increased [Unknown]
  - Headache [Recovering/Resolving]
  - Pain [Unknown]
  - Dehydration [Unknown]
  - Vomiting [Unknown]
  - Metastases to liver [Unknown]
  - Second primary malignancy [Unknown]
  - Depression [Unknown]
  - Faeces discoloured [Not Recovered/Not Resolved]
  - Contusion [Unknown]
  - Abdominal pain upper [Recovering/Resolving]
  - Fatigue [Unknown]
  - Asthenia [Unknown]
  - Brain scan abnormal [Unknown]
  - Gastrointestinal carcinoma [Unknown]
  - Malaise [Unknown]
  - Nausea [Unknown]
  - Mucous stools [Unknown]
  - Myalgia [Recovering/Resolving]
  - Alopecia [Unknown]
  - Diarrhoea [Unknown]
  - Malignant neoplasm progression [Unknown]
  - Metastases to lung [Unknown]
  - Influenza [Unknown]
  - Abdominal pain [Unknown]

NARRATIVE: CASE EVENT DATE: 201511
